FAERS Safety Report 15838905 (Version 2)
Quarter: 2019Q1

REPORT INFORMATION
  Report Type: Spontaneous
  Country: DE (occurrence: DE)
  Receive Date: 20190117
  Receipt Date: 20190322
  Transmission Date: 20190417
  Serious: Yes (Hospitalization)
  Sender: FDA-Public Use
  Company Number: DE-ANIPHARMA-2018-DE-000206

PATIENT
  Sex: Female
  Weight: 64 kg

DRUGS (2)
  1. ANASTROZOLE. [Suspect]
     Active Substance: ANASTROZOLE
     Indication: BREAST CANCER METASTATIC
     Dosage: 1 MG DAILY
     Route: 048
     Dates: start: 20180911
  2. RIBOCICLIB. [Suspect]
     Active Substance: RIBOCICLIB
     Dosage: 600 MG, (21 DAYS ) / DOSE TEXT: 600 MG, (21 DAYS ) / DOSE TEXT: 600 MG, (21 DAYS )
     Route: 048
     Dates: start: 20180911

REACTIONS (5)
  - Rash pustular [Recovered/Resolved]
  - Urinary tract infection [Recovered/Resolved]
  - Pruritus [Recovering/Resolving]
  - Confusional state [Recovered/Resolved]
  - Dehydration [Recovered/Resolved]

NARRATIVE: CASE EVENT DATE: 20181009
